FAERS Safety Report 5359310-6 (Version None)
Quarter: 2007Q2

REPORT INFORMATION
  Report Type: 
  Country: None (occurrence: None)
  Receive Date: 20070615
  Receipt Date: 20070608
  Transmission Date: 20071010
  Serious: No
  Sender: FDA-Public Use
  Company Number: GB-AMGEN-US222682

PATIENT
  Sex: Female

DRUGS (4)
  1. ENBREL [Suspect]
     Indication: PSORIATIC ARTHROPATHY
     Dosage: 50MG WEEKLY, FREQUENCY UNSPECIFIED
     Route: 058
     Dates: start: 20070301, end: 20070407
  2. PARACETAMOL [Concomitant]
     Indication: ANALGESIC EFFECT
     Dosage: PRN
     Route: 048
  3. DICLOFENAC [Concomitant]
     Indication: ANALGESIC EFFECT
     Route: 048
  4. OMEPRAZOLE [Concomitant]
     Indication: GASTROOESOPHAGEAL REFLUX DISEASE
     Route: 048

REACTIONS (2)
  - HYPERSENSITIVITY [None]
  - INJECTION SITE REACTION [None]
